FAERS Safety Report 19724197 (Version 1)
Quarter: 2021Q3

REPORT INFORMATION
  Report Type: Spontaneous
  Country: US (occurrence: US)
  Receive Date: 20210819
  Receipt Date: 20210819
  Transmission Date: 20211014
  Serious: Yes (Hospitalization)
  Sender: FDA-Public Use
  Company Number: US-DECIPHERA PHARMACEUTICALS LLC-2021US000651

PATIENT
  Sex: Male

DRUGS (1)
  1. QINLOCK [Suspect]
     Active Substance: RIPRETINIB
     Indication: GASTROINTESTINAL STROMAL TUMOUR
     Dosage: 150 MILLIGRAM, QD
     Route: 048
     Dates: start: 20210615

REACTIONS (6)
  - Infection [Unknown]
  - Headache [Unknown]
  - Pyrexia [Unknown]
  - Lipase increased [Unknown]
  - Dental care [Unknown]
  - Chills [Unknown]

NARRATIVE: CASE EVENT DATE: 2021
